FAERS Safety Report 13931633 (Version 1)
Quarter: 2017Q3

REPORT INFORMATION
  Report Type: Report from Study
  Country: ZA (occurrence: ZA)
  Receive Date: 20170904
  Receipt Date: 20170904
  Transmission Date: 20171127
  Serious: Yes (Death, Hospitalization, Other)
  Sender: FDA-Public Use
  Company Number: ZA-AMGEN-ZAFSL2017132371

PATIENT
  Age: 35 Year
  Sex: Female

DRUGS (1)
  1. ARANESP [Suspect]
     Active Substance: DARBEPOETIN ALFA
     Indication: ANAEMIA
     Dosage: 80 MUG, QWK
     Route: 065
     Dates: start: 201609, end: 201708

REACTIONS (2)
  - Blood glucose decreased [Unknown]
  - Death [Fatal]

NARRATIVE: CASE EVENT DATE: 201708
